FAERS Safety Report 20950244 (Version 1)
Quarter: 2022Q2

REPORT INFORMATION
  Report Type: Spontaneous
  Country: US (occurrence: None)
  Receive Date: 20220610
  Receipt Date: 20220610
  Transmission Date: 20220721
  Serious: Yes (Hospitalization)
  Sender: FDA-Public Use
  Company Number: None

PATIENT
  Age: 66 Year
  Sex: Male
  Weight: 126.28 kg

DRUGS (24)
  1. PROMACTA [Suspect]
     Active Substance: ELTROMBOPAG OLAMINE
     Indication: Metastases to lung
     Dosage: FREQUENCY : DAILY;?
     Route: 048
     Dates: start: 20210707
  2. ACYCLOVIR [Concomitant]
     Active Substance: ACYCLOVIR
  3. ALBUTEROL [Concomitant]
     Active Substance: ALBUTEROL
  4. CENTRUM [Concomitant]
  5. COLESTIPOL [Concomitant]
     Active Substance: COLESTIPOL
  6. COENZYME Q10 [Concomitant]
     Active Substance: DIETARY SUPPLEMENT\UBIDECARENONE
  7. CRESTOR [Concomitant]
  8. DYMISTA [Concomitant]
  9. ECONAZOLE [Concomitant]
  10. ELIQUIS [Concomitant]
  11. FEXOFENADINE [Concomitant]
  12. FLOMAX [Concomitant]
  13. HYDROCHLOROTHIAZIDE [Concomitant]
  14. KLOR-CON [Concomitant]
     Active Substance: POTASSIUM CHLORIDE
  15. LASIX [Concomitant]
  16. LORATADINE [Concomitant]
  17. LORTAN [Concomitant]
  18. NITROGLYCERIN [Concomitant]
  19. SYNTHROID [Concomitant]
  20. TRELEGY [Concomitant]
  21. VITAMIN B COMPLEX [Concomitant]
  22. ZOFRAN [Concomitant]
  23. ZYLOPRIM [Concomitant]
  24. ZYRTEC [Concomitant]

REACTIONS (3)
  - Joint swelling [None]
  - Fluid retention [None]
  - Cardiac failure congestive [None]
